FAERS Safety Report 19845299 (Version 1)
Quarter: 2021Q3

REPORT INFORMATION
  Report Type: Spontaneous
  Country: US (occurrence: US)
  Receive Date: 20210915
  Receipt Date: 20210915
  Transmission Date: 20211014
  Serious: No
  Sender: FDA-Public Use
  Company Number: None

PATIENT
  Age: 86 Year
  Sex: Male
  Weight: 109 kg

DRUGS (2)
  1. VENLAFAXINE (VENLAFAXINE HCL 150MG 24HR CAP,SA)) [Suspect]
     Active Substance: VENLAFAXINE HYDROCHLORIDE
     Indication: DEPRESSION
     Route: 048
     Dates: start: 20210811
  2. MIRTAZAPINE (MIRTAZAPINE 15MG TAB) [Suspect]
     Active Substance: MIRTAZAPINE
     Dosage: ?          OTHER FREQUENCY:AT BEDTIME;?
     Route: 048
     Dates: start: 20210812

REACTIONS (5)
  - Alanine aminotransferase increased [None]
  - Electrocardiogram QT prolonged [None]
  - Drug screen positive [None]
  - Intentional overdose [None]
  - Pneumonia [None]

NARRATIVE: CASE EVENT DATE: 20210904
